FAERS Safety Report 4521792-7 (Version None)
Quarter: 2004Q4

REPORT INFORMATION
  Report Type: 
  Country: None (occurrence: None)
  Receive Date: 20041208
  Receipt Date: 20041208
  Transmission Date: 20050328
  Serious: Yes (Hospitalization)
  Sender: FDA-Public Use
  Company Number: None

PATIENT
  Sex: Female
  Weight: 68.4932 kg

DRUGS (9)
  1. IRESSA [Suspect]
     Indication: PANCREATIC CARCINOMA
     Dosage: 250 MG  DAILY  ORAL
     Route: 048
     Dates: start: 20041004, end: 20041130
  2. RADIATION THERAPY [Concomitant]
  3. PACLITAXEL [Concomitant]
  4. VICODIN [Concomitant]
  5. GLIPIZIDE [Concomitant]
  6. METFORMIN HCL [Concomitant]
  7. LOVASTATIN [Concomitant]
  8. COMPAZINE [Concomitant]
  9. IMODIUM [Concomitant]

REACTIONS (4)
  - CONFUSIONAL STATE [None]
  - DISORIENTATION [None]
  - FALL [None]
  - SEPSIS [None]
